FAERS Safety Report 5093661-8 (Version None)
Quarter: 2006Q3

REPORT INFORMATION
  Report Type: 
  Country: None (occurrence: None)
  Receive Date: 20060829
  Receipt Date: 20060815
  Transmission Date: 20061208
  Serious: Yes (Hospitalization)
  Sender: FDA-Public Use
  Company Number: 2006BI010552

PATIENT
  Age: 70 Year
  Sex: Female

DRUGS (9)
  1. AVONEX [Suspect]
     Indication: MULTIPLE SCLEROSIS
     Dosage: 30 UG; QW; IM
     Route: 030
     Dates: start: 19981001, end: 20030801
  2. AVONEX [Suspect]
     Indication: MULTIPLE MYELOMA
     Dosage: 30  UG; QW; IM
     Route: 030
     Dates: start: 20030901
  3. DILANTIN [Concomitant]
  4. LOPRESSOR [Concomitant]
  5. VICODIN [Concomitant]
  6. OSCAL [Concomitant]
  7. ELAVIL [Concomitant]
  8. FOSAMAX [Concomitant]
  9. DITROPAN [Concomitant]

REACTIONS (8)
  - ACCIDENT [None]
  - ANTICONVULSANT DRUG LEVEL ABNORMAL [None]
  - ANTICONVULSANT TOXICITY [None]
  - CEREBROVASCULAR ACCIDENT [None]
  - COORDINATION ABNORMAL [None]
  - FALL [None]
  - GAIT DISTURBANCE [None]
  - HEAD INJURY [None]
